FAERS Safety Report 8341232-X (Version None)
Quarter: 2012Q2

REPORT INFORMATION
  Report Type: 
  Country: None (occurrence: None)
  Receive Date: 20120507
  Receipt Date: 20120430
  Transmission Date: 20120825
  Serious: Yes (Hospitalization)
  Sender: FDA-Public Use
  Company Number: AT-JNJFOC-20100307479

PATIENT
  Sex: Female
  Weight: 62 kg

DRUGS (10)
  1. REMICADE [Suspect]
     Route: 042
     Dates: start: 20090629
  2. REMICADE [Suspect]
     Indication: COLITIS ULCERATIVE
     Route: 042
     Dates: start: 20090629
  3. MESALAMINE [Concomitant]
  4. LEVOTHYROXINE SODIUM [Concomitant]
  5. REMICADE [Suspect]
     Route: 042
     Dates: end: 20100101
  6. REMICADE [Suspect]
     Indication: ARTHRITIS
     Route: 042
     Dates: end: 20100101
  7. REMICADE [Suspect]
     Route: 042
     Dates: start: 20080630
  8. REMICADE [Suspect]
     Route: 042
     Dates: start: 20080630
  9. PANTOPRAZOLE SODIUM [Concomitant]
  10. DIOVAN [Concomitant]

REACTIONS (3)
  - ARTHRITIS [None]
  - SARCOMA [None]
  - MALIGNANT MELANOMA [None]
